FAERS Safety Report 17043611 (Version 1)
Quarter: 2019Q4

REPORT INFORMATION
  Report Type: Spontaneous
  Country: US (occurrence: US)
  Receive Date: 20191118
  Receipt Date: 20191118
  Transmission Date: 20200122
  Serious: No
  Sender: FDA-Public Use
  Company Number: US-PFIZER INC-2019496455

PATIENT
  Sex: Female

DRUGS (1)
  1. SKELAXIN [Suspect]
     Active Substance: METAXALONE

REACTIONS (2)
  - Malaise [Unknown]
  - Drug ineffective [Unknown]
